FAERS Safety Report 7861379-1 (Version None)
Quarter: 2011Q4

REPORT INFORMATION
  Report Type: 
  Country: None (occurrence: None)
  Receive Date: 20111027
  Receipt Date: 20111004
  Transmission Date: 20120403
  Serious: No
  Sender: FDA-Public Use
  Company Number: US-BAYER-2011-095529

PATIENT
  Age: 87 Year
  Sex: Female
  Weight: 82 kg

DRUGS (4)
  1. LIPITOR [Concomitant]
  2. CITRACAL PETITES [Suspect]
     Dosage: 2 DF, QD
     Route: 048
     Dates: start: 20100101
  3. NITROFURANTOIN [Concomitant]
  4. ASPIRIN [Concomitant]
     Indication: ISCHAEMIC HEART DISEASE PROPHYLAXIS
     Route: 048

REACTIONS (2)
  - DRY MOUTH [None]
  - TONGUE COATED [None]
